FAERS Safety Report 7677574-0 (Version None)
Quarter: 2011Q3

REPORT INFORMATION
  Report Type: 
  Country: None (occurrence: None)
  Receive Date: 20110811
  Receipt Date: 20110811
  Transmission Date: 20111222
  Serious: Yes (Other)
  Sender: FDA-Public Use
  Company Number: None

PATIENT
  Age: 58 Year
  Sex: Female
  Weight: 80.285 kg

DRUGS (1)
  1. HERCEPTIN [Suspect]
     Indication: BREAST CANCER
     Dosage: 500MG
     Route: 041
     Dates: start: 20110316, end: 20110725

REACTIONS (6)
  - MALAISE [None]
  - RASH GENERALISED [None]
  - VOMITING [None]
  - RASH PRURITIC [None]
  - RASH ERYTHEMATOUS [None]
  - NAUSEA [None]
